FAERS Safety Report 9434649 (Version 1)
Quarter: 2013Q3

REPORT INFORMATION
  Report Type: Spontaneous
  Country: US (occurrence: US)
  Receive Date: 20130801
  Receipt Date: 20130801
  Transmission Date: 20140515
  Serious: Yes (Hospitalization, Other)
  Sender: FDA-Public Use
  Company Number: US-BAYER-201017682NA

PATIENT
  Age: 37 Year
  Sex: Female
  Weight: 88.89 kg

DRUGS (20)
  1. YAZ [Suspect]
     Indication: MENSTRUATION IRREGULAR
     Route: 048
  2. HUMIRA [Suspect]
     Indication: PSORIASIS
     Dosage: 40 MG (DAILY DOSE), Q2WK,
     Dates: start: 20100127
  3. MORPHINE SULFATE [Concomitant]
  4. OXYCODONE [Concomitant]
  5. TIZANIDINE HYDROCHLORIDE [Concomitant]
  6. GABAPENTIN [Concomitant]
  7. AMITRIPTYLINE [Concomitant]
     Dosage: 5 TIMES PER DAY
  8. FLUOXETINE [Concomitant]
  9. DOCUSATE SODIUM [Concomitant]
  10. NAMENDA [Concomitant]
  11. ONDANSETRON [Concomitant]
  12. HYDROXYZINE EMBONATE [Concomitant]
     Dosage: ONE OUR TREE TIME WHEN AS NEEDED
  13. OMEPRAZOLE [Concomitant]
  14. BUPROPION [Concomitant]
  15. IMITREX [Concomitant]
  16. NEURONTIN [Concomitant]
     Dosage: 1 EVERY MORNING, 1 AT NOON, AND 2 EVERY NIGHT.
  17. CHOLESTYRAMINE RESIN [Concomitant]
     Dosage: 1 SCOOP DAILY
  18. PROTONIX [Concomitant]
  19. IBUPROFEN [Concomitant]
  20. NAPROXEN [Concomitant]

REACTIONS (6)
  - Deep vein thrombosis [Unknown]
  - Pain in extremity [Unknown]
  - Local swelling [Unknown]
  - Gait disturbance [Unknown]
  - Limb discomfort [Unknown]
  - Pulmonary embolism [Recovered/Resolved]
